FAERS Safety Report 9909189 (Version 1)
Quarter: 2014Q1

REPORT INFORMATION
  Report Type: Spontaneous
  Country: US (occurrence: US)
  Receive Date: 20140219
  Receipt Date: 20140219
  Transmission Date: 20141002
  Serious: Yes (Hospitalization, Disabling)
  Sender: FDA-Public Use
  Company Number: US-ACTELION-A-NJ2014-94765

PATIENT
  Age: 67 Year
  Sex: Male

DRUGS (2)
  1. OPSUMIT [Suspect]
     Indication: PULMONARY ARTERIAL HYPERTENSION
     Dosage: 10 MG, QD
     Route: 048
     Dates: start: 20131204
  2. ADCIRCA [Concomitant]
     Dosage: UNK

REACTIONS (1)
  - Hyponatraemia [Not Recovered/Not Resolved]
